FAERS Safety Report 11151038 (Version 3)
Quarter: 2015Q4

REPORT INFORMATION
  Report Type: Spontaneous
  Country: US (occurrence: None)
  Receive Date: 20150528
  Receipt Date: 20151209
  Transmission Date: 20160304
  Serious: Yes (Hospitalization, Other)
  Sender: FDA-Public Use
  Company Number: ADR-2015-01030

PATIENT
  Age: 28 Year
  Sex: Male

DRUGS (1)
  1. LIORESAL [Suspect]
     Active Substance: BACLOFEN
     Indication: MUSCLE SPASTICITY
     Dosage: ? 1030 MCG/DAY

REACTIONS (13)
  - Product taste abnormal [None]
  - Cerebrospinal fluid leakage [None]
  - Overdose [None]
  - Abasia [None]
  - Device infusion issue [None]
  - Unresponsive to stimuli [None]
  - Device occlusion [None]
  - Paralysis [None]
  - Altered state of consciousness [None]
  - Iatrogenic injury [None]
  - Urinary retention [None]
  - Device kink [None]
  - Therapeutic response increased [None]
